FAERS Safety Report 6963281-6 (Version None)
Quarter: 2010Q3

REPORT INFORMATION
  Report Type: 
  Country: None (occurrence: None)
  Receive Date: 20100902
  Receipt Date: 20100831
  Transmission Date: 20110219
  Serious: Yes (Hospitalization)
  Sender: FDA-Public Use
  Company Number: JP-ROXANE LABORATORIES, INC.-2010-RO-01168RO

PATIENT
  Age: 37 Year
  Sex: Male

DRUGS (3)
  1. AZATHIOPRINE [Suspect]
     Indication: CROHN'S DISEASE
  2. PREDNISOLONE [Suspect]
     Indication: CROHN'S DISEASE
  3. 5-AMINOSALICYLIC ACID [Suspect]
     Indication: CROHN'S DISEASE

REACTIONS (1)
  - HEPATIC NEOPLASM MALIGNANT RESECTABLE [None]
